FAERS Safety Report 23152611 (Version 3)
Quarter: 2024Q1

REPORT INFORMATION
  Report Type: Spontaneous
  Country: US (occurrence: US)
  Receive Date: 20231107
  Receipt Date: 20240130
  Transmission Date: 20240409
  Serious: Yes (Hospitalization, Other)
  Sender: FDA-Public Use
  Company Number: US-ABBVIE-5484624

PATIENT
  Age: 78 Year
  Sex: Female
  Weight: 84 kg

DRUGS (4)
  1. IMBRUVICA [Suspect]
     Active Substance: IBRUTINIB
     Indication: Product used for unknown indication
     Route: 048
     Dates: start: 20220401, end: 20231103
  2. IMBRUVICA [Suspect]
     Active Substance: IBRUTINIB
     Indication: Product used for unknown indication
     Route: 048
     Dates: start: 2017
  3. MINERALS\VITAMINS [Concomitant]
     Active Substance: MINERALS\VITAMINS
     Indication: Product used for unknown indication
     Dates: start: 2017
  4. COLON HEALTH [Concomitant]
     Indication: Product used for unknown indication
     Dates: start: 2017

REACTIONS (5)
  - Myocardial infarction [Recovered/Resolved]
  - Stress cardiomyopathy [Recovering/Resolving]
  - Chest pain [Unknown]
  - Pain in jaw [Unknown]
  - Blindness [Unknown]

NARRATIVE: CASE EVENT DATE: 20231101
